FAERS Safety Report 5530262-9 (Version None)
Quarter: 2007Q4

REPORT INFORMATION
  Report Type: 
  Country: None (occurrence: None)
  Receive Date: 20071127
  Receipt Date: 20071127
  Transmission Date: 20080405
  Serious: Yes (Death)
  Sender: FDA-Public Use
  Company Number: None

PATIENT
  Sex: Female
  Weight: 86.1834 kg

DRUGS (1)
  1. CHANTIX [Suspect]
     Indication: SMOKING CESSATION THERAPY
     Dates: start: 20070805, end: 20071028

REACTIONS (6)
  - ABNORMAL DREAMS [None]
  - CARBON MONOXIDE POISONING [None]
  - DEPRESSION [None]
  - NIGHTMARE [None]
  - POISONING DELIBERATE [None]
  - PSYCHIATRIC SYMPTOM [None]
